FAERS Safety Report 19462469 (Version 1)
Quarter: 2021Q2

REPORT INFORMATION
  Report Type: Spontaneous
  Country: SI (occurrence: SI)
  Receive Date: 20210625
  Receipt Date: 20210625
  Transmission Date: 20210717
  Serious: Yes (Other)
  Sender: FDA-Public Use
  Company Number: SI-ROCHE-2857940

PATIENT
  Age: 88 Year
  Sex: Female

DRUGS (13)
  1. LUCENTIS [Suspect]
     Active Substance: RANIBIZUMAB
     Dosage: (3 APPLICATION)
     Route: 065
     Dates: start: 2019
  2. DETRALEX [Concomitant]
     Active Substance: DIOSMIN\HESPERIDIN
     Indication: VARICOSE VEIN
     Dosage: UNK
     Route: 065
  3. PERINDOPRIL [Concomitant]
     Active Substance: PERINDOPRIL
     Indication: HYPERTENSION
     Route: 065
  4. LUCENTIS [Suspect]
     Active Substance: RANIBIZUMAB
     Indication: PRODUCT USED FOR UNKNOWN INDICATION
     Dosage: UNK (RIGHT EYE; 8 APPLICATIONS) ABOUT 4 YEARS
     Route: 065
     Dates: start: 20170323
  5. BEOVU [Suspect]
     Active Substance: BROLUCIZUMAB-DBLL
     Route: 065
     Dates: start: 20210504
  6. EYLEA [Concomitant]
     Active Substance: AFLIBERCEPT
     Dosage: UNK (2 APPLICATION)
     Route: 065
     Dates: start: 2019
  7. EYLEA [Concomitant]
     Active Substance: AFLIBERCEPT
     Dosage: UNK (5 APPLICATION)
     Route: 065
     Dates: start: 2020
  8. EYLEA [Concomitant]
     Active Substance: AFLIBERCEPT
     Dosage: UNK (2 APPLICATION)
     Route: 065
     Dates: start: 2021, end: 2021
  9. EYLEA [Concomitant]
     Active Substance: AFLIBERCEPT
     Indication: PRODUCT USED FOR UNKNOWN INDICATION
     Dosage: UNK (4 APPLICATIONS)
     Route: 065
     Dates: start: 2018
  10. LUCENTIS [Suspect]
     Active Substance: RANIBIZUMAB
     Dosage: (2 APPLICATION)
     Route: 065
     Dates: start: 2020, end: 20200709
  11. EYLEA [Concomitant]
     Active Substance: AFLIBERCEPT
     Dosage: UNK (LEFT EYE; 6X)
     Route: 065
     Dates: start: 20201130
  12. LUCENTIS [Suspect]
     Active Substance: RANIBIZUMAB
     Dosage: (2 APPLICATION)
     Route: 065
     Dates: start: 2018
  13. BEOVU [Suspect]
     Active Substance: BROLUCIZUMAB-DBLL
     Indication: PRODUCT USED FOR UNKNOWN INDICATION
     Route: 065
     Dates: start: 20210407

REACTIONS (14)
  - Papilloedema [Unknown]
  - Eye haemorrhage [Recovered/Resolved]
  - Vitritis [Recovered/Resolved]
  - Blindness [Unknown]
  - Dyschromatopsia [Unknown]
  - Vision blurred [Recovered/Resolved]
  - Retinal fovea disorder [Unknown]
  - Vitreous disorder [Unknown]
  - Retinal disorder [Unknown]
  - Retinal vascular occlusion [Recovered/Resolved]
  - Retinal vasculitis [Recovered/Resolved]
  - Visual impairment [Unknown]
  - Vitreous floaters [Recovered/Resolved]
  - Visual field defect [Recovered/Resolved]

NARRATIVE: CASE EVENT DATE: 20200709
